FAERS Safety Report 12393323 (Version 1)
Quarter: 2016Q2

REPORT INFORMATION
  Report Type: Spontaneous
  Country: CA (occurrence: CA)
  Receive Date: 20160523
  Receipt Date: 20160523
  Transmission Date: 20160815
  Serious: Yes (Other)
  Sender: FDA-Public Use
  Company Number: CA-JNJFOC-20160517491

PATIENT
  Age: 64 Year
  Sex: Female
  Weight: 82.1 kg

DRUGS (4)
  1. COVERSYL PLUS [Concomitant]
     Active Substance: INDAPAMIDE\PERINDOPRIL
     Route: 065
  2. INVOKANA [Suspect]
     Active Substance: CANAGLIFLOZIN
     Indication: TYPE 2 DIABETES MELLITUS
     Route: 048
  3. METFORMIN [Concomitant]
     Active Substance: METFORMIN HYDROCHLORIDE
     Route: 065
  4. SYNTHROID [Concomitant]
     Active Substance: LEVOTHYROXINE SODIUM
     Route: 065

REACTIONS (9)
  - Chest discomfort [Recovered/Resolved]
  - Back pain [Recovered/Resolved]
  - Thirst [Recovered/Resolved]
  - Incontinence [Recovered/Resolved]
  - Lethargy [Recovered/Resolved]
  - Pruritus [Recovered/Resolved]
  - Urinary tract disorder [Recovered/Resolved]
  - Pain in jaw [Recovered/Resolved]
  - Confusional state [Recovered/Resolved]
